FAERS Safety Report 15345794 (Version 2)
Quarter: 2018Q4

REPORT INFORMATION
  Report Type: Spontaneous
  Country: CA (occurrence: CA)
  Receive Date: 20180904
  Receipt Date: 20181227
  Transmission Date: 20190204
  Serious: Yes (Other)
  Sender: FDA-Public Use
  Company Number: CA-CELLTRION INC.-2018CA017428

PATIENT

DRUGS (6)
  1. MAXIDEX [Concomitant]
     Active Substance: DEXAMETHASONE
     Dosage: UNK
     Dates: start: 2004
  2. INFLECTRA [Suspect]
     Active Substance: INFLIXIMAB-DYYB
     Dosage: 400 MG, THEN EVERY 6 WEEKS
     Route: 042
     Dates: start: 20180409
  3. INFLECTRA [Suspect]
     Active Substance: INFLIXIMAB-DYYB
     Dosage: 400 MG, THEN EVERY 6 WEEKS
     Route: 042
     Dates: start: 20181217
  4. HYDROCORTISONE                     /00028602/ [Concomitant]
     Active Substance: HYDROCORTISONE
  5. INFLECTRA [Suspect]
     Active Substance: INFLIXIMAB-DYYB
     Dosage: 400 MG, THEN EVERY 6 WEEKS
     Route: 042
     Dates: start: 20180703
  6. INFLECTRA [Suspect]
     Active Substance: INFLIXIMAB-DYYB
     Indication: ANKYLOSING SPONDYLITIS
     Dosage: 400 MG,THEN EVERY 6 WEEKS
     Route: 042
     Dates: start: 20160601

REACTIONS (15)
  - Cough [Recovered/Resolved]
  - Gastroenteritis viral [Recovered/Resolved]
  - Cataract [Unknown]
  - Off label use [Unknown]
  - Aggression [Unknown]
  - Pyrexia [Recovered/Resolved]
  - Heart rate decreased [Unknown]
  - Sneezing [Recovered/Resolved]
  - Oropharyngeal pain [Recovered/Resolved]
  - Blood pressure fluctuation [Unknown]
  - Intentional dose omission [Unknown]
  - Abnormal behaviour [Unknown]
  - Anger [Unknown]
  - Influenza [Recovered/Resolved]
  - Heart rate irregular [Unknown]

NARRATIVE: CASE EVENT DATE: 201801
